FAERS Safety Report 4275927-4 (Version None)
Quarter: 2004Q1

REPORT INFORMATION
  Report Type: 
  Country: None (occurrence: None)
  Receive Date: 20040121
  Receipt Date: 20030320
  Transmission Date: 20041129
  Serious: No
  Sender: FDA-Public Use
  Company Number: US-GLAXOSMITHKLINE-A0401251A

PATIENT
  Age: 73 Year
  Sex: Female

DRUGS (6)
  1. VALTREX [Suspect]
     Dosage: 1CAPL TWICE PER DAY
     Route: 048
     Dates: start: 20030314, end: 20030319
  2. LOPRESSOR [Concomitant]
  3. LASIX [Concomitant]
  4. ASPIRIN [Concomitant]
  5. DARVOCET [Concomitant]
  6. ZOVIRAX [Concomitant]
     Route: 061

REACTIONS (1)
  - PAIN [None]
